FAERS Safety Report 16720059 (Version 1)
Quarter: 2019Q4

REPORT INFORMATION
  Report Type: Spontaneous
  Country: CA (occurrence: CA)
  Receive Date: 20190816
  Receipt Date: 20190816
  Transmission Date: 20200122
  Serious: No
  Sender: FDA-Public Use
  Company Number: None

PATIENT
  Age: 20 Year
  Sex: Female
  Weight: 45 kg

DRUGS (1)
  1. 5% COLLOIDAL SULFUR, 4% GLYCOLIC ACID, ACNE SPOT + AREA TREATMENT [Suspect]
     Active Substance: SULFUR
     Indication: ACNE
     Route: 061
     Dates: start: 20190811, end: 20190815

REACTIONS (7)
  - Burning sensation [None]
  - Feeding disorder [None]
  - Dyskinesia [None]
  - Pruritus [None]
  - Skin exfoliation [None]
  - Dry skin [None]
  - Erythema [None]

NARRATIVE: CASE EVENT DATE: 20190814
